FAERS Safety Report 8876296 (Version 1)
Quarter: 2012Q4

REPORT INFORMATION
  Report Type: 
  Country: GB (occurrence: GB)
  Receive Date: 20121023
  Receipt Date: 20121023
  Transmission Date: 20130627
  Serious: Yes (Other)
  Sender: FDA-Public Use
  Company Number: PHHY2012GB093023

PATIENT
  Age: 71 Year
  Sex: Female
  Weight: 83 kg

DRUGS (4)
  1. IRINOTECAN [Suspect]
     Indication: COLORECTAL CANCER METASTATIC
     Route: 065
  2. FOLINIC ACID [Suspect]
     Indication: COLORECTAL CANCER METASTATIC
     Dosage: 50 mg
     Route: 042
     Dates: start: 20060703, end: 20061109
  3. ELOXATIN [Suspect]
     Indication: COLORECTAL CANCER METASTATIC
     Dosage: 85 mg/m^2
     Route: 042
     Dates: start: 20060703, end: 20061109
  4. 5-FU [Suspect]
     Indication: COLORECTAL CANCER METASTATIC
     Dosage: Dose-400 NOS bolus and 1200 NOS
     Route: 065
     Dates: start: 20060703, end: 20061109

REACTIONS (7)
  - Neurotoxicity [Recovered/Resolved]
  - Paraesthesia [Unknown]
  - Hyporeflexia [Unknown]
  - Asthenia [Unknown]
  - Blister [Recovered/Resolved]
  - Constipation [Recovered/Resolved]
  - Areflexia [Unknown]
